FAERS Safety Report 12707598 (Version 1)
Quarter: 2016Q3

REPORT INFORMATION
  Report Type: Spontaneous
  Country: US (occurrence: US)
  Receive Date: 20160901
  Receipt Date: 20160901
  Transmission Date: 20161109
  Serious: No
  Sender: FDA-Public Use
  Company Number: US-ACTELION-A-US2016-139920

PATIENT
  Age: 51 Year
  Sex: Male

DRUGS (11)
  1. CARVEDILOL. [Concomitant]
     Active Substance: CARVEDILOL
  2. ASPIRIN. [Concomitant]
     Active Substance: ASPIRIN
  3. NEXIUM [Concomitant]
     Active Substance: ESOMEPRAZOLE MAGNESIUM
  4. DILTIAZEM. [Concomitant]
     Active Substance: DILTIAZEM
  5. LISINOPRIL. [Concomitant]
     Active Substance: LISINOPRIL
  6. SILDENAFIL. [Suspect]
     Active Substance: SILDENAFIL
     Indication: PRODUCT USED FOR UNKNOWN INDICATION
     Route: 065
  7. VENTAVIS [Concomitant]
     Active Substance: ILOPROST
     Indication: PULMONARY ARTERIAL HYPERTENSION
  8. AMBRISENTAN [Suspect]
     Active Substance: AMBRISENTAN
     Indication: HEART DISEASE CONGENITAL
     Dosage: 5 MG, QD
     Route: 065
     Dates: start: 20151008
  9. CRESTOR [Concomitant]
     Active Substance: ROSUVASTATIN CALCIUM
  10. AMBIEN [Concomitant]
     Active Substance: ZOLPIDEM TARTRATE
  11. UPTRAVI [Suspect]
     Active Substance: SELEXIPAG
     Indication: PULMONARY HYPERTENSION
     Dosage: 600 MCG, BID
     Route: 048
     Dates: start: 20160706

REACTIONS (3)
  - Hypoaesthesia [Recovered/Resolved]
  - Pain [Recovered/Resolved]
  - Headache [Recovered/Resolved]

NARRATIVE: CASE EVENT DATE: 20160711
